FAERS Safety Report 26140072 (Version 1)
Quarter: 2025Q4

REPORT INFORMATION
  Report Type: Spontaneous
  Country: US (occurrence: None)
  Receive Date: 20251209
  Receipt Date: 20251209
  Transmission Date: 20260117
  Serious: Yes (Hospitalization, Other)
  Sender: FDA-CTU
  Company Number: None

PATIENT
  Age: 2 Month
  Sex: Male
  Weight: 6.3 kg

DRUGS (1)
  1. ZORYVE [Suspect]
     Active Substance: ROFLUMILAST
     Indication: Dermatitis atopic
     Dosage: TOPICAL
     Route: 061
     Dates: start: 20250924, end: 20251005

REACTIONS (1)
  - Application site reaction [None]

NARRATIVE: CASE EVENT DATE: 20250925
